FAERS Safety Report 23585738 (Version 1)
Quarter: 2024Q1

REPORT INFORMATION
  Report Type: Spontaneous
  Country: US (occurrence: None)
  Receive Date: 20240229
  Receipt Date: 20240229
  Transmission Date: 20240410
  Serious: Yes (Hospitalization)
  Sender: FDA-Public Use
  Company Number: None

PATIENT
  Age: 46 Year
  Sex: Male

DRUGS (1)
  1. ONUREG [Suspect]
     Active Substance: AZACITIDINE
     Indication: Acute myeloid leukaemia
     Dosage: 300 MG ORAL??TAKE 1 TABLET BY MOUTH 1 TIME A DAY ON DAYS 1-14 OF A 28 DAY CYCLE
     Route: 048
     Dates: start: 20240117

REACTIONS (2)
  - Platelet count decreased [None]
  - Petechiae [None]

NARRATIVE: CASE EVENT DATE: 20240212
